FAERS Safety Report 4604156-7 (Version None)
Quarter: 2005Q1

REPORT INFORMATION
  Report Type: 
  Country: None (occurrence: None)
  Receive Date: 20050214
  Receipt Date: 20041103
  Transmission Date: 20050727
  Serious: No
  Sender: FDA-Public Use
  Company Number: US_0411107935

PATIENT
  Age: 75 Year
  Sex: Male

DRUGS (7)
  1. CIALIS [Suspect]
     Dosage: 20 MG
     Dates: start: 20041001
  2. CARDIZEM [Concomitant]
  3. ASPIRIN [Concomitant]
  4. LISINOPRIL [Concomitant]
  5. VITAMINS NOS [Concomitant]
  6. GARLIC [Concomitant]
  7. TRIAMTERENE [Concomitant]

REACTIONS (3)
  - BLOOD PRESSURE INCREASED [None]
  - FEELING HOT [None]
  - INSOMNIA [None]
